FAERS Safety Report 11540701 (Version 1)
Quarter: 2015Q3

REPORT INFORMATION
  Report Type: Spontaneous
  Country: US (occurrence: US)
  Receive Date: 20150923
  Receipt Date: 20150923
  Transmission Date: 20151125
  Serious: No
  Sender: FDA-Public Use
  Company Number: US-GLAXOSMITHKLINE-US2015GSK096959

PATIENT
  Sex: Female

DRUGS (2)
  1. IMITREX SPRAY [Suspect]
     Active Substance: SUMATRIPTAN
     Indication: HEADACHE
     Dosage: 1 DF, PRN FOR HEADACHE
  2. IMITREX SPRAY [Suspect]
     Active Substance: SUMATRIPTAN
     Dosage: 2 DF, PRN FOR HEADACHE

REACTIONS (3)
  - Wrong technique in product usage process [Unknown]
  - Intentional product use issue [Unknown]
  - Extra dose administered [Unknown]
